FAERS Safety Report 8824095 (Version 1)
Quarter: 2012Q4

REPORT INFORMATION
  Report Type: 
  Country: US (occurrence: US)
  Receive Date: 20121003
  Receipt Date: 20121003
  Transmission Date: 20130627
  Serious: Yes (Other)
  Sender: FDA-Public Use
  Company Number: US-PFIZER INC-2012240655

PATIENT
  Age: 81 Year
  Sex: Male

DRUGS (1)
  1. DETROL LA [Suspect]
     Dosage: 4 mg, UNK

REACTIONS (2)
  - Prostate cancer [Unknown]
  - Nocturia [Unknown]
